APPROVED DRUG PRODUCT: ISOETHARINE HYDROCHLORIDE
Active Ingredient: ISOETHARINE HYDROCHLORIDE
Strength: 0.14%
Dosage Form/Route: SOLUTION;INHALATION
Application: A088145 | Product #001
Applicant: BAXTER HEALTHCARE CORP
Approved: Mar 26, 1984 | RLD: No | RS: No | Type: DISCN